FAERS Safety Report 9573213 (Version 2)
Quarter: 2013Q4

REPORT INFORMATION
  Report Type: Spontaneous
  Country: US (occurrence: US)
  Receive Date: 20131001
  Receipt Date: 20131001
  Transmission Date: 20140711
  Serious: Yes (Hospitalization, Other)
  Sender: FDA-Public Use
  Company Number: US-NAPPMUNDI-USA-2012-0082152

PATIENT
  Sex: Male
  Weight: 109.3 kg

DRUGS (4)
  1. BUTRANS [Suspect]
     Indication: PAIN
     Dosage: 10 MCG/HR, WEEKLY
  2. NAPROXEN [Suspect]
     Indication: PRODUCT USED FOR UNKNOWN INDICATION
     Dosage: 500 MG, UNK
  3. CYMBALTA [Concomitant]
     Indication: DEPRESSION
     Dosage: 30 MG, UNK
     Dates: start: 20120118
  4. NEURONTIN [Concomitant]
     Indication: NEURALGIA
     Dosage: 300 MG, UNK
     Dates: start: 20120118

REACTIONS (2)
  - Drug hypersensitivity [Recovered/Resolved]
  - Throat tightness [Unknown]
